FAERS Safety Report 6833120-2 (Version None)
Quarter: 2010Q3

REPORT INFORMATION
  Report Type: 
  Country: None (occurrence: None)
  Receive Date: 20100712
  Receipt Date: 20100602
  Transmission Date: 20110219
  Serious: No
  Sender: FDA-Public Use
  Company Number: US-BIOGENIDEC-2010BI018731

PATIENT
  Sex: Female

DRUGS (2)
  1. TYSABRI [Suspect]
     Indication: MULTIPLE SCLEROSIS
     Route: 042
     Dates: start: 20070531
  2. AVONEX [Concomitant]
     Indication: MULTIPLE SCLEROSIS
     Route: 030

REACTIONS (9)
  - CENTRAL NERVOUS SYSTEM LESION [None]
  - CERVICAL POLYP [None]
  - FUNGAL INFECTION [None]
  - METRORRHAGIA [None]
  - OVARIAN CYST [None]
  - RESPIRATORY TRACT INFECTION [None]
  - SPINAL DISORDER [None]
  - ULTRASOUND UTERUS ABNORMAL [None]
  - VULVAL LACERATION [None]
